FAERS Safety Report 9530668 (Version 2)
Quarter: 2014Q1

REPORT INFORMATION
  Report Type: Not Available
  Country: US (occurrence: US)
  Receive Date: 20130918
  Receipt Date: 20140306
  Transmission Date: 20141002
  Serious: Yes (Other)
  Sender: FDA-Public Use
  Company Number: US-LUPIN PHARMACEUTICALS INC.-E2B_00001267

PATIENT
  Age: 31 Year
  Sex: Male
  Weight: 86.26 kg

DRUGS (1)
  1. CEPHALEXIN CAPSULES 500 MG [Suspect]
     Indication: LOCALISED INFECTION
     Dates: start: 20130701, end: 20130708

REACTIONS (14)
  - Gait disturbance [Recovering/Resolving]
  - Altered visual depth perception [Recovering/Resolving]
  - Erectile dysfunction [Recovering/Resolving]
  - Depression [Recovering/Resolving]
  - Fungal infection [Unknown]
  - Pruritus [Recovering/Resolving]
  - Dyspnoea [Recovering/Resolving]
  - Diarrhoea [Recovering/Resolving]
  - Dizziness [Recovering/Resolving]
  - Headache [Recovering/Resolving]
  - Nausea [Recovering/Resolving]
  - Abdominal distension [Recovering/Resolving]
  - Disturbance in attention [Recovering/Resolving]
  - Blood oestrogen increased [Recovering/Resolving]
